FAERS Safety Report 8203409-3 (Version None)
Quarter: 2012Q1

REPORT INFORMATION
  Report Type: 
  Country: None (occurrence: None)
  Receive Date: 20120312
  Receipt Date: 20120301
  Transmission Date: 20120608
  Serious: Yes (Other)
  Sender: FDA-Public Use
  Company Number: US-ASTRAZENECA-2011SE59674

PATIENT
  Age: 57 Year
  Sex: Female
  Weight: 64.4 kg

DRUGS (4)
  1. NEXIUM [Suspect]
     Indication: GASTROOESOPHAGEAL REFLUX DISEASE
     Route: 048
     Dates: start: 20100101
  2. SYNTHROID [Concomitant]
     Indication: THYROID DISORDER
  3. OXYCODONE HCL [Concomitant]
     Indication: PAIN
  4. TRAMADOL HCL [Concomitant]
     Indication: MUSCLE RELAXANT THERAPY

REACTIONS (13)
  - FRACTURED SACRUM [None]
  - CRYING [None]
  - VOMITING [None]
  - HEPATITIS C [None]
  - GASTROOESOPHAGEAL REFLUX DISEASE [None]
  - DRUG DOSE OMISSION [None]
  - LIVER DISORDER [None]
  - REGURGITATION [None]
  - SOMNOLENCE [None]
  - INTERVERTEBRAL DISC PROTRUSION [None]
  - OFF LABEL USE [None]
  - APHAGIA [None]
  - PLANTAR FASCIITIS [None]
